FAERS Safety Report 9091422 (Version 2)
Quarter: 2013Q1

REPORT INFORMATION
  Report Type: Spontaneous
  Country: FR (occurrence: FR)
  Receive Date: 20130131
  Receipt Date: 20130225
  Transmission Date: 20140127
  Serious: Yes (Hospitalization)
  Sender: FDA-Public Use
  Company Number: FR-ROCHE-1183932

PATIENT
  Sex: Female
  Weight: 65 kg

DRUGS (11)
  1. MABTHERA [Suspect]
     Indication: B-CELL LYMPHOMA
     Route: 042
     Dates: start: 20110805, end: 20130124
  2. BENDAMUSTINE [Concomitant]
     Indication: B-CELL LYMPHOMA
     Route: 042
     Dates: start: 20121213, end: 20130214
  3. CYCLOPHOSPHAMIDE [Concomitant]
     Indication: B-CELL LYMPHOMA
     Route: 042
     Dates: start: 20110805, end: 20111215
  4. VINCRISTINE [Concomitant]
     Indication: B-CELL LYMPHOMA
     Route: 042
     Dates: start: 20110805, end: 20111215
  5. DOXORUBICIN [Concomitant]
     Indication: B-CELL LYMPHOMA
     Route: 042
     Dates: start: 20110805, end: 20111215
  6. PREDNISOLONE [Concomitant]
     Indication: B-CELL LYMPHOMA
     Route: 042
     Dates: start: 20110805, end: 20111215
  7. NEULASTA [Concomitant]
     Indication: NEUTROPENIA
     Route: 058
     Dates: start: 20110805, end: 20111215
  8. BACTRIM [Concomitant]
     Indication: PNEUMONIA
     Route: 048
     Dates: start: 20121213, end: 20130115
  9. WELLVONE [Concomitant]
     Indication: PNEUMONIA
     Route: 065
     Dates: start: 20130115
  10. KARDEGIC [Concomitant]
  11. LODOZ [Concomitant]

REACTIONS (1)
  - Chorea [Recovering/Resolving]
